FAERS Safety Report 17018060 (Version 2)
Quarter: 2020Q1

REPORT INFORMATION
  Report Type: Report from Study
  Country: US (occurrence: US)
  Receive Date: 20191111
  Receipt Date: 20200107
  Transmission Date: 20200409
  Serious: Yes (Hospitalization, Other)
  Sender: FDA-Public Use
  Company Number: US-ACTELION-A-NJ2018-170556

PATIENT
  Age: 70 Year
  Sex: Female
  Weight: 51.7 kg

DRUGS (4)
  1. ADCIRCA [Concomitant]
     Active Substance: TADALAFIL
  2. OPSUMIT [Suspect]
     Active Substance: MACITENTAN
     Indication: PULMONARY ARTERIAL HYPERTENSION
     Dosage: 10 MG, QD
     Route: 048
     Dates: start: 20170805
  3. REMODULIN [Concomitant]
     Active Substance: TREPROSTINIL
  4. WARFARIN [Concomitant]
     Active Substance: WARFARIN

REACTIONS (8)
  - Hospitalisation [Recovered/Resolved]
  - Laparoscopy [Unknown]
  - Hypoxia [Recovered/Resolved]
  - Pneumonia viral [Recovered/Resolved]
  - Erythema [Recovered/Resolved]
  - Cholecystectomy [Unknown]
  - Respiratory failure [Recovered/Resolved]
  - Anaemia [Unknown]

NARRATIVE: CASE EVENT DATE: 20180319
